FAERS Safety Report 6848762-8 (Version None)
Quarter: 2010Q3

REPORT INFORMATION
  Report Type: 
  Country: None (occurrence: None)
  Receive Date: 20100716
  Receipt Date: 20070910
  Transmission Date: 20110219
  Serious: Yes (Other)
  Sender: FDA-Public Use
  Company Number: US-PFIZER INC-2007076175

PATIENT
  Sex: Female
  Weight: 68.181 kg

DRUGS (3)
  1. CHANTIX [Suspect]
     Indication: SMOKING CESSATION THERAPY
     Dosage: EVERYDAY
     Dates: start: 20070501
  2. ADVAIR DISKUS 100/50 [Concomitant]
  3. PROCATEROL HCL [Concomitant]

REACTIONS (2)
  - ANXIETY [None]
  - DEPRESSION [None]
